FAERS Safety Report 9374541 (Version 2)
Quarter: 2013Q3

REPORT INFORMATION
  Report Type: Not Available
  Country: JP (occurrence: JP)
  Receive Date: 20130628
  Receipt Date: 20130801
  Transmission Date: 20140515
  Serious: Yes (Death, Hospitalization)
  Sender: FDA-Public Use
  Company Number: JP-ASTELLAS-2013JP004346

PATIENT
  Age: 62 Year
  Sex: Male
  Weight: 47.2 kg

DRUGS (14)
  1. PROGRAF [Suspect]
     Indication: LUPUS NEPHRITIS
     Dosage: 1.5 MG, UID/QD
     Route: 048
     Dates: start: 20091016, end: 20130227
  2. ATORVASTATIN                       /01326102/ [Concomitant]
     Indication: HYPERLIPIDAEMIA
     Dosage: 10 MG, UID/QD
     Route: 048
     Dates: start: 20091016, end: 20130327
  3. OLMETEC [Concomitant]
     Indication: HYPERTENSION
     Dosage: 20 MG, UID/QD
     Route: 048
     Dates: start: 20091120, end: 20130327
  4. PARIET [Concomitant]
     Indication: GASTROOESOPHAGEAL REFLUX DISEASE
     Dosage: 10 MG, UID/QD
     Route: 048
     Dates: start: 20090918, end: 20130327
  5. URINORM [Concomitant]
     Indication: HYPERURICAEMIA
     Dosage: 25 MG, UID/QD
     Route: 048
     Dates: start: 20091121, end: 20130327
  6. CALFINA [Concomitant]
     Indication: OSTEOPOROSIS PROPHYLAXIS
     Dosage: 0.25 UG, UID/QD
     Route: 048
     Dates: start: 20091023, end: 20130327
  7. URIEF [Concomitant]
     Indication: DYSURIA
     Dosage: 4 MG, BID
     Route: 048
     Dates: start: 20100607, end: 20130327
  8. URIEF [Concomitant]
     Indication: BENIGN PROSTATIC HYPERPLASIA
  9. METHYCOBAL [Concomitant]
     Indication: NEUROPATHY PERIPHERAL
     Dosage: 500 UG, TID
     Route: 048
     Dates: start: 20100802, end: 20130327
  10. LYRICA [Concomitant]
     Indication: NEURALGIA
     Dosage: 50 MG, BID
     Route: 048
     Dates: start: 20110820, end: 20130327
  11. PREDNISOLONE [Concomitant]
     Indication: LUPUS NEPHRITIS
     Dosage: 3 MG, UID/QD
     Route: 048
     Dates: start: 20090917, end: 20130227
  12. PREDNISOLONE [Concomitant]
     Indication: INTERSTITIAL LUNG DISEASE
     Dosage: 40 MG, UNKNOWN/D
     Route: 048
     Dates: start: 20130303
  13. PREDNISOLONE [Concomitant]
     Dosage: 40 MG, UNKNOWN/D
     Route: 048
     Dates: start: 20130310, end: 20130327
  14. SULBACILLIN [Concomitant]
     Indication: PLEURISY
     Dosage: 3 G, BID
     Route: 042
     Dates: start: 20130218, end: 20130226

REACTIONS (3)
  - Malignant pleural effusion [Fatal]
  - Interstitial lung disease [Recovering/Resolving]
  - Adenocarcinoma [Not Recovered/Not Resolved]
